FAERS Safety Report 4775285-2 (Version None)
Quarter: 2005Q3

REPORT INFORMATION
  Report Type: 
  Country: None (occurrence: None)
  Receive Date: 20050921
  Receipt Date: 20050921
  Transmission Date: 20060218
  Serious: Yes (Hospitalization)
  Sender: FDA-Public Use
  Company Number: None

PATIENT
  Age: 49 Year
  Sex: Male
  Weight: 88.4 kg

DRUGS (4)
  1. GEMCITABINE [Suspect]
     Indication: METASTASIS
     Dosage: IV , 1000 MG/M2
     Route: 042
     Dates: start: 20050912
  2. GEMCITABINE [Suspect]
     Indication: TONSIL CANCER
     Dosage: IV , 1000 MG/M2
     Route: 042
     Dates: start: 20050912
  3. DOXORUBICIN HCL [Suspect]
     Indication: METASTASIS
     Dosage: IV, 25 MG /M2
     Route: 042
     Dates: start: 20050912
  4. DOXORUBICIN HCL [Suspect]
     Indication: TONSIL CANCER
     Dosage: IV, 25 MG /M2
     Route: 042
     Dates: start: 20050912

REACTIONS (5)
  - ANAEMIA [None]
  - DIZZINESS [None]
  - HEADACHE [None]
  - LEUKOPENIA [None]
  - SINUSITIS [None]
